FAERS Safety Report 8069458-3 (Version None)
Quarter: 2012Q1

REPORT INFORMATION
  Report Type: 
  Country: None (occurrence: None)
  Receive Date: 20120125
  Receipt Date: 20120116
  Transmission Date: 20120608
  Serious: Yes (Hospitalization)
  Sender: FDA-Public Use
  Company Number: FR-JNJFOC-20120107115

PATIENT
  Sex: Female

DRUGS (8)
  1. AMITRIPTYLINE HCL [Suspect]
     Indication: PRODUCT USED FOR UNKNOWN INDICATION
     Route: 048
     Dates: end: 20111001
  2. MIRTAZAPINE [Suspect]
     Route: 065
     Dates: start: 20110801
  3. MICARDIS HCT [Concomitant]
     Dosage: 80MG/12.5MG
     Route: 048
  4. MIRTAZAPINE [Suspect]
     Indication: DEPRESSION
     Route: 065
  5. CLONAZEPAM [Suspect]
     Indication: PRODUCT USED FOR UNKNOWN INDICATION
     Route: 048
     Dates: end: 20111001
  6. EXELON [Concomitant]
     Route: 003
  7. EUPRESSYL [Concomitant]
     Route: 048
  8. HALDOL [Suspect]
     Indication: PRODUCT USED FOR UNKNOWN INDICATION
     Route: 048
     Dates: end: 20111001

REACTIONS (1)
  - DISTURBANCE IN ATTENTION [None]
